FAERS Safety Report 25030069 (Version 1)
Quarter: 2025Q1

REPORT INFORMATION
  Report Type: Spontaneous
  Country: US (occurrence: US)
  Receive Date: 20250303
  Receipt Date: 20250303
  Transmission Date: 20250409
  Serious: Yes (Death, Hospitalization)
  Sender: INGENUS
  Company Number: US-INGENUS PHARMACEUTICALS NJ, LLC-2025ING000003

PATIENT
  Age: 57 Year
  Sex: Male

DRUGS (1)
  1. SODIUM BICARBONATE [Suspect]
     Active Substance: SODIUM BICARBONATE
     Indication: Drug screen
     Route: 048

REACTIONS (8)
  - Intentional product misuse [Fatal]
  - Toxicity to various agents [Fatal]
  - Brain oedema [Fatal]
  - Seizure [Recovered/Resolved]
  - Diarrhoea [Unknown]
  - Faeces discoloured [Unknown]
  - Hypernatraemia [Fatal]
  - Brain herniation [Fatal]
